FAERS Safety Report 9676355 (Version 2)
Quarter: 2013Q4

REPORT INFORMATION
  Report Type: Report from Study
  Country: GB (occurrence: GB)
  Receive Date: 20131107
  Receipt Date: 20131206
  Transmission Date: 20140711
  Serious: Yes (Hospitalization)
  Sender: FDA-Public Use
  Company Number: GB-ELI_LILLY_AND_COMPANY-GB201310004717

PATIENT
  Age: 60 Year
  Sex: Male
  Weight: 103 kg

DRUGS (3)
  1. GEMCITABINE HYDROCHLORIDE [Suspect]
     Indication: TRANSITIONAL CELL CARCINOMA
     Dosage: 2200 MG, BID
     Dates: start: 20130613
  2. CISPLATIN [Suspect]
     Indication: TRANSITIONAL CELL CARCINOMA
     Dosage: 154 MG, OTHER
     Dates: start: 20130613
  3. TEMSIROLIMUS [Suspect]
     Indication: TRANSITIONAL CELL CARCINOMA
     Dosage: 10 MG, UNK
     Dates: start: 20130704

REACTIONS (4)
  - Neutropenia [Unknown]
  - Febrile neutropenia [Unknown]
  - Neutropenic sepsis [Recovered/Resolved]
  - White blood cell count decreased [Unknown]
